FAERS Safety Report 11913744 (Version 2)
Quarter: 2016Q2

REPORT INFORMATION
  Report Type: Spontaneous
  Country: CH (occurrence: CH)
  Receive Date: 20160113
  Receipt Date: 20160603
  Transmission Date: 20160815
  Serious: Yes (Life-Threatening, Other)
  Sender: FDA-Public Use
  Company Number: CH-JNJFOC-20160108334

PATIENT
  Age: 21 Year
  Sex: Female

DRUGS (1)
  1. TRAMAL [Suspect]
     Active Substance: TRAMADOL
     Indication: POST-TRAUMATIC PAIN
     Route: 048
     Dates: start: 20151210, end: 20151210

REACTIONS (5)
  - Cyanosis [Recovered/Resolved]
  - Bruxism [Recovered/Resolved]
  - Generalised tonic-clonic seizure [Recovered/Resolved]
  - Malaise [Recovered/Resolved]
  - Accidental overdose [Recovered/Resolved]

NARRATIVE: CASE EVENT DATE: 20151210
